FAERS Safety Report 21855311 (Version 1)
Quarter: 2023Q1

REPORT INFORMATION
  Report Type: Spontaneous
  Country: CN (occurrence: CN)
  Receive Date: 20230112
  Receipt Date: 20230112
  Transmission Date: 20230418
  Serious: Yes (Hospitalization, Other)
  Sender: FDA-Public Use
  Company Number: CN-FOSUNKITE-FOSUNKITE-20230002

PATIENT
  Sex: Male

DRUGS (1)
  1. YESCARTA [Suspect]
     Active Substance: AXICABTAGENE CILOLEUCEL
     Indication: Diffuse large B-cell lymphoma
     Dosage: UNK
     Route: 041
     Dates: start: 20221229, end: 20221229

REACTIONS (4)
  - Hyperpyrexia [Unknown]
  - Oxygen saturation decreased [Unknown]
  - Cytokine release syndrome [Unknown]
  - Myelosuppression [Unknown]

NARRATIVE: CASE EVENT DATE: 20221229
